FAERS Safety Report 24711554 (Version 1)
Quarter: 2024Q4

REPORT INFORMATION
  Report Type: Report from Study
  Country: US (occurrence: US)
  Receive Date: 20241209
  Receipt Date: 20241209
  Transmission Date: 20250115
  Serious: Yes (Other)
  Sender: PFIZER
  Company Number: US-PFIZER INC-202400315933

PATIENT
  Age: 69 Year
  Sex: Female

DRUGS (1)
  1. BRAFTOVI [Suspect]
     Active Substance: ENCORAFENIB
     Dosage: 300 MG, 1X/DAY (75 MG X 4 CAPSULES ONCE DAILY BY MOUTH)
     Dates: start: 20241009

REACTIONS (6)
  - Transfusion [Unknown]
  - Weight decreased [Unknown]
  - Dehydration [Unknown]
  - Blood potassium abnormal [Unknown]
  - Blood magnesium abnormal [Unknown]
  - Blood calcium abnormal [Unknown]
